FAERS Safety Report 9478788 (Version 2)
Quarter: 2013Q3

REPORT INFORMATION
  Report Type: Report from Study
  Country: US (occurrence: US)
  Receive Date: 20130827
  Receipt Date: 20130916
  Transmission Date: 20140515
  Serious: Yes (Other)
  Sender: FDA-Public Use
  Company Number: US-JNJFOC-20130810233

PATIENT
  Sex: Female
  Weight: 58.06 kg

DRUGS (6)
  1. REMICADE [Suspect]
     Indication: PSORIATIC ARTHROPATHY
     Route: 042
     Dates: start: 201301, end: 201307
  2. REMICADE [Suspect]
     Indication: PSORIATIC ARTHROPATHY
     Route: 042
  3. PREDNISONE [Suspect]
     Indication: PSORIATIC ARTHROPATHY
     Route: 048
     Dates: start: 201301, end: 201304
  4. PREMARIN [Concomitant]
     Indication: HORMONE REPLACEMENT THERAPY
     Route: 048
     Dates: start: 1998
  5. TRAZODONE [Concomitant]
     Indication: SLEEP DISORDER
     Route: 048
  6. ZYRTEC [Concomitant]
     Indication: MULTIPLE ALLERGIES
     Route: 065

REACTIONS (18)
  - Staphylococcal infection [Recovered/Resolved]
  - Confusional state [Unknown]
  - Depression [Not Recovered/Not Resolved]
  - Feeling cold [Recovered/Resolved]
  - Fungal infection [Recovered/Resolved]
  - Candida infection [Recovered/Resolved]
  - Furuncle [Recovered/Resolved]
  - Insomnia [Not Recovered/Not Resolved]
  - Anxiety [Not Recovered/Not Resolved]
  - Pain [Not Recovered/Not Resolved]
  - Sunburn [Recovered/Resolved]
  - Feeling abnormal [Unknown]
  - Weight increased [Recovered/Resolved]
  - Abdominal distension [Recovered/Resolved]
  - Swelling [Recovered/Resolved]
  - Lethargy [Recovered/Resolved]
  - Quality of life decreased [Not Recovered/Not Resolved]
  - Joint stiffness [Not Recovered/Not Resolved]
